FAERS Safety Report 4952818-4 (Version None)
Quarter: 2006Q1

REPORT INFORMATION
  Report Type: 
  Country: None (occurrence: None)
  Receive Date: 20060324
  Receipt Date: 20060313
  Transmission Date: 20060701
  Serious: Yes (Hospitalization)
  Sender: FDA-Public Use
  Company Number: FR-JNJFOC-20060303383

PATIENT
  Age: 75 Year
  Sex: Male

DRUGS (5)
  1. REMINYL [Suspect]
     Route: 048
  2. PARIET [Suspect]
     Indication: DRUG USE FOR UNKNOWN INDICATION
     Route: 048
  3. DIAMICRON [Suspect]
     Indication: DIABETES MELLITUS
     Route: 048
  4. TRIFLUCAN [Suspect]
     Indication: DIARRHOEA
     Route: 048
  5. EBIXA [Suspect]
     Route: 048

REACTIONS (2)
  - GAMMA-GLUTAMYLTRANSFERASE INCREASED [None]
  - HEPATIC ENZYME INCREASED [None]
